FAERS Safety Report 11319089 (Version 1)
Quarter: 2015Q3

REPORT INFORMATION
  Report Type: Spontaneous
  Country: US (occurrence: None)
  Receive Date: 20150727
  Receipt Date: 20150727
  Transmission Date: 20151125
  Serious: Yes (Hospitalization)
  Sender: FDA-Public Use
  Company Number: 2015PL000143

PATIENT
  Age: 1 Day
  Sex: Male
  Weight: 3.1 kg

DRUGS (2)
  1. METHYLPREDNISOLONE (METHYLPREDNISOLONE) [Suspect]
     Active Substance: METHYLPREDNISOLONE
     Indication: AUTOIMMUNE HEPATITIS
     Route: 064
  2. AZATHIOPRINE (AZATHIOPRINE) [Suspect]
     Active Substance: AZATHIOPRINE
     Indication: AUTOIMMUNE HEPATITIS
     Route: 064

REACTIONS (20)
  - Dyspnoea [None]
  - Foetal exposure during pregnancy [None]
  - Meconium peritonitis [None]
  - Polyhydramnios [None]
  - Foetal placental thrombosis [None]
  - Neonatal intestinal perforation [None]
  - Infantile vomiting [None]
  - Maternal drugs affecting foetus [None]
  - Ascites [None]
  - Abdominal adhesions [None]
  - Premature baby [None]
  - Caesarean section [None]
  - Use of accessory respiratory muscles [None]
  - Pseudocyst [None]
  - Feeding disorder of infancy or early childhood [None]
  - Hydrops foetalis [None]
  - Small for dates baby [None]
  - Placental disorder [None]
  - Enterococcus test positive [None]
  - Breech presentation [None]
